FAERS Safety Report 9729901 (Version 3)
Quarter: 2013Q4

REPORT INFORMATION
  Report Type: Spontaneous
  Country: US (occurrence: US)
  Receive Date: 20131204
  Receipt Date: 20131219
  Transmission Date: 20140711
  Serious: Yes (Death, Hospitalization)
  Sender: FDA-Public Use
  Company Number: GXBR2013US002063

PATIENT
  Age: 83 Year
  Sex: Male

DRUGS (6)
  1. AMIODARONE HYDROCHLORIDE TABLETS [Suspect]
     Indication: ATRIAL FLUTTER
     Dosage: 400 MG, BID
     Route: 048
     Dates: start: 20130816
  2. TAMSULOSIN [Concomitant]
     Indication: HYPERTENSION
     Dosage: UNK DF, UNK
     Dates: end: 20130822
  3. CLONIDINE [Concomitant]
     Dosage: UNK DF, UNK
     Dates: end: 20130821
  4. AMLODIPINE [Concomitant]
     Dosage: UNK DF, UNK
     Dates: end: 20130817
  5. METOPROLOL [Concomitant]
     Indication: HEART RATE ABNORMAL
     Dosage: UNK DF, UNK
  6. LATANOPROST [Concomitant]
     Dosage: UNK DF, UNK

REACTIONS (5)
  - Cardiac arrest [Fatal]
  - Pulse absent [Fatal]
  - Respiratory arrest [Fatal]
  - Hypertension [Not Recovered/Not Resolved]
  - Orthostatic hypotension [Not Recovered/Not Resolved]
